FAERS Safety Report 21591465 (Version 1)
Quarter: 2022Q4

REPORT INFORMATION
  Report Type: Spontaneous
  Country: US (occurrence: US)
  Receive Date: 20221114
  Receipt Date: 20221114
  Transmission Date: 20230113
  Serious: Yes (Other)
  Sender: FDA-Public Use
  Company Number: US-OTSUKA-2022_051231

PATIENT
  Age: 18 Year
  Sex: Female

DRUGS (1)
  1. ABILIFY MAINTENA [Suspect]
     Active Substance: ARIPIPRAZOLE
     Indication: Product used for unknown indication
     Dosage: 400 MG, QM
     Route: 065
     Dates: start: 2021, end: 20221021

REACTIONS (2)
  - Psychotic symptom [Not Recovered/Not Resolved]
  - Suicidal ideation [Not Recovered/Not Resolved]
